FAERS Safety Report 16563816 (Version 2)
Quarter: 2019Q3

REPORT INFORMATION
  Report Type: Spontaneous
  Country: KR (occurrence: KR)
  Receive Date: 20190712
  Receipt Date: 20190723
  Transmission Date: 20191004
  Serious: Yes (Death, Hospitalization, Other)
  Sender: FDA-Public Use
  Company Number: KR-009507513-1905KOR012803

PATIENT
  Sex: Female

DRUGS (17)
  1. KEYTRUDA [Suspect]
     Active Substance: PEMBROLIZUMAB
     Dosage: QUANTITY 2, DAYS 1
     Dates: start: 20190510, end: 20190510
  2. MAGMIL [Concomitant]
     Active Substance: MAGNESIUM HYDROXIDE
     Dosage: QUANTITY 4, DAYS 1
     Route: 048
     Dates: start: 20190419, end: 20190419
  3. DUPHALAC [Concomitant]
     Active Substance: LACTULOSE
     Dosage: QUANTITY 1, DAYS 1
     Dates: start: 20190418, end: 20190418
  4. TIROPA (TIROPRAMIDE HYDROCHLORIDE) [Concomitant]
     Dosage: QUANTITY 1, DAYS 2
     Route: 048
     Dates: start: 20190418, end: 20190422
  5. CURAN [Concomitant]
     Active Substance: RANITIDINE HYDROCHLORIDE
     Dosage: QUANTITY 1, DAYS 2
     Route: 048
     Dates: start: 20190418, end: 20190422
  6. SODIUM CHLORIDE. [Concomitant]
     Active Substance: SODIUM CHLORIDE
     Dosage: QUANTITY 1, DAYS 1
     Dates: start: 20190419, end: 20190419
  7. TRAZODONE HYDROCHLORIDE. [Concomitant]
     Active Substance: TRAZODONE HYDROCHLORIDE
     Dosage: QUANTITY 1, DAYS 4
     Route: 048
     Dates: start: 20190418, end: 20190421
  8. COMBIFLEX PERI [Concomitant]
     Dosage: QUANTITY 1, DAYS 2
     Dates: start: 20190418, end: 20190420
  9. KEYTRUDA [Suspect]
     Active Substance: PEMBROLIZUMAB
     Indication: CHOLANGIOCARCINOMA
     Dosage: QUANTITY 2, DAYS 1
     Dates: start: 20190419, end: 20190419
  10. MAGMIL [Concomitant]
     Active Substance: MAGNESIUM HYDROXIDE
     Dosage: QUANTITY 2, DAYS 1
     Route: 048
     Dates: start: 20190418, end: 20190418
  11. ALMAGEL (ALMAGATE) [Concomitant]
     Dosage: QUANTITY 2, DAYS 1
     Dates: start: 20190418, end: 20190418
  12. MOTILITONE [Concomitant]
     Active Substance: HERBALS
     Dosage: QUANTITY 1, DAYS 2
     Route: 048
     Dates: start: 20190418, end: 20190422
  13. MECKOOL [Concomitant]
     Dosage: QUANTITY 1, DAYS 1
     Dates: start: 20190419, end: 20190419
  14. DUOLAX (BISACODYL (+) DOCUSATE SODIUM) [Concomitant]
     Dosage: QUANTITY 2, DAYS 1
     Route: 048
     Dates: start: 20190418, end: 20190418
  15. SODIUM CHLORIDE. [Concomitant]
     Active Substance: SODIUM CHLORIDE
     Dosage: QUANTITY 1, DAYS 1
     Dates: start: 20190419, end: 20190419
  16. DUPHALAC [Concomitant]
     Active Substance: LACTULOSE
     Dosage: QUANTITY 3, DAYS 1
     Dates: start: 20190419, end: 20190419
  17. SODIUM CHLORIDE. [Concomitant]
     Active Substance: SODIUM CHLORIDE
     Dosage: QUANTITY 1, DAYS 1
     Dates: start: 20190419, end: 20190419

REACTIONS (4)
  - Malignant neoplasm progression [Fatal]
  - Adverse event [Unknown]
  - Adverse event [Unknown]
  - Product use in unapproved indication [Unknown]

NARRATIVE: CASE EVENT DATE: 2019
